FAERS Safety Report 6273620-X (Version None)
Quarter: 2009Q3

REPORT INFORMATION
  Report Type: 
  Country: None (occurrence: None)
  Receive Date: 20090713
  Receipt Date: 20080909
  Transmission Date: 20100115
  Serious: Yes (Other)
  Sender: FDA-Public Use
  Company Number: 585697

PATIENT
  Age: 65 Year
  Sex: Female

DRUGS (2)
  1. BONIVA [Suspect]
     Indication: OSTEOPOROSIS
     Dosage: 150 MG ORAL
     Route: 048
     Dates: start: 20060101
  2. CELEXA [Concomitant]

REACTIONS (2)
  - DENTAL CARIES [None]
  - TOOTH LOSS [None]
